FAERS Safety Report 6826159-4 (Version None)
Quarter: 2010Q3

REPORT INFORMATION
  Report Type: 
  Country: None (occurrence: None)
  Receive Date: 20100709
  Receipt Date: 20100625
  Transmission Date: 20110219
  Serious: Yes (Hospitalization)
  Sender: FDA-Public Use
  Company Number: JP-ELI_LILLY_AND_COMPANY-JP201002007471

PATIENT
  Sex: Male
  Weight: 68.5 kg

DRUGS (10)
  1. PEMETREXED [Suspect]
     Indication: LUNG ADENOCARCINOMA RECURRENT
     Dosage: 500 MG/M2, OTHER, DAY 1 EACH 21 DAYS
     Route: 042
     Dates: start: 20091112, end: 20091224
  2. PANVITAN [Concomitant]
     Dosage: 1 G, DAILY (1/D), 0.5MG/D AS FOLIC ACID
     Route: 048
     Dates: start: 20091105, end: 20100210
  3. HYDROXOCOBALAMIN ACETATE [Concomitant]
     Dosage: 1 MG, UNK
     Route: 030
     Dates: start: 20091105, end: 20091105
  4. ASPIRIN [Concomitant]
     Indication: ATRIAL FIBRILLATION
     Dosage: 100 MG, DAILY (1/D)
     Route: 048
     Dates: start: 20091114
  5. DECADRON /00016002/ [Concomitant]
     Dosage: 6.6 MG, SAME DAY AS PEMETREXED
     Route: 042
     Dates: start: 20091112, end: 20091224
  6. HEPAFLUSH [Concomitant]
     Dosage: UNK, SAME DAY AS PEMETREXED
     Route: 042
     Dates: start: 20091112, end: 20091224
  7. SELTOUCH [Concomitant]
     Indication: ARTHRALGIA
     Route: 062
     Dates: start: 20091201, end: 20091211
  8. VOLTAREN                                /SCH/ [Concomitant]
     Indication: ARTHRALGIA
     Route: 065
     Dates: start: 20091211
  9. COTRIM [Concomitant]
     Indication: PROPHYLAXIS
     Route: 048
     Dates: start: 20100109
  10. SPIRIVA [Concomitant]
     Indication: CHRONIC OBSTRUCTIVE PULMONARY DISEASE
     Dosage: UNK, UNK
     Route: 055
     Dates: start: 20100126

REACTIONS (6)
  - BRAIN OEDEMA [None]
  - DECREASED APPETITE [None]
  - FEELING ABNORMAL [None]
  - INTERSTITIAL LUNG DISEASE [None]
  - NAUSEA [None]
  - PNEUMONIA [None]
